FAERS Safety Report 5976566-7 (Version None)
Quarter: 2008Q4

REPORT INFORMATION
  Report Type: 
  Country: None (occurrence: None)
  Receive Date: 20081202
  Receipt Date: 20081121
  Transmission Date: 20090506
  Serious: Yes (Other)
  Sender: FDA-Public Use
  Company Number: US-JNJCH-2008055463

PATIENT
  Age: 13 Year
  Sex: Male
  Weight: 27.2 kg

DRUGS (1)
  1. LUDENS THROAT DROPS WILD CHERRY [Suspect]
     Indication: OROPHARYNGEAL PAIN
     Dosage: TEXT:1 EVERY 2-3 HOURS
     Route: 048
     Dates: start: 20081120, end: 20081120

REACTIONS (5)
  - MALAISE [None]
  - PRODUCT CONTAMINATION [None]
  - PRODUCT QUALITY ISSUE [None]
  - PRODUCT TAMPERING [None]
  - VOMITING [None]
